FAERS Safety Report 13234006 (Version 1)
Quarter: 2017Q1

REPORT INFORMATION
  Report Type: Spontaneous
  Country: US (occurrence: US)
  Receive Date: 20170214
  Receipt Date: 20170214
  Transmission Date: 20170428
  Serious: No
  Sender: FDA-Public Use
  Company Number: None

PATIENT
  Age: 44 Year
  Sex: Female
  Weight: 87.75 kg

DRUGS (4)
  1. LOSARTAN. [Concomitant]
     Active Substance: LOSARTAN
  2. GLUCOSAMINE [Concomitant]
     Active Substance: GLUCOSAMINE
  3. OLAY TOTAL EFFECTS CC TONE CORRECTING BROAD SPECTRUM SPF 15 LIGHT TO MEDIUM [Suspect]
     Active Substance: AVOBENZONE\OCTISALATE\OCTOCRYLENE
     Indication: TANNING
     Dosage: ?          QUANTITY:1.7 OUNCE(S);?
     Route: 061
     Dates: start: 20161217, end: 20161218
  4. ALEVE [Concomitant]
     Active Substance: NAPROXEN SODIUM

REACTIONS (2)
  - Rash generalised [None]
  - Pain [None]

NARRATIVE: CASE EVENT DATE: 20161217
